FAERS Safety Report 7268203-9 (Version None)
Quarter: 2011Q1

REPORT INFORMATION
  Report Type: 
  Country: None (occurrence: None)
  Receive Date: 20110201
  Receipt Date: 20110125
  Transmission Date: 20110831
  Serious: No
  Sender: FDA-Public Use
  Company Number: US-PFIZER INC-2010089802

PATIENT
  Sex: Female

DRUGS (3)
  1. OGEN [Suspect]
     Dosage: UNK
  2. ESTROPIPATE [Suspect]
     Dosage: UNK
  3. PREMARIN [Suspect]
     Dosage: UNK
     Route: 048

REACTIONS (2)
  - NAUSEA [None]
  - MALAISE [None]
